FAERS Safety Report 9784688 (Version 1)
Quarter: 2013Q4

REPORT INFORMATION
  Report Type: Spontaneous
  Country: FR (occurrence: FR)
  Receive Date: 20131226
  Receipt Date: 20131226
  Transmission Date: 20140711
  Serious: Yes (Hospitalization)
  Sender: FDA-Public Use
  Company Number: FR-WATSON-2013-23831

PATIENT
  Age: 86 Year
  Sex: Female

DRUGS (2)
  1. ATENOLOL [Suspect]
     Indication: PRODUCT USED FOR UNKNOWN INDICATION
     Dosage: 50 MG, DAILY (0.5 DF /DAY)
     Route: 048
     Dates: end: 20130601
  2. FLECAINE [Suspect]
     Indication: ATRIAL FIBRILLATION
     Dosage: 1 DF, DAILY
     Route: 048
     Dates: end: 20130601

REACTIONS (2)
  - Malaise [Recovered/Resolved]
  - Sick sinus syndrome [Recovered/Resolved]
